FAERS Safety Report 4474181-8 (Version None)
Quarter: 2004Q4

REPORT INFORMATION
  Report Type: 
  Country: None (occurrence: None)
  Receive Date: 20041008
  Receipt Date: 20040923
  Transmission Date: 20050328
  Serious: Yes (Other)
  Sender: FDA-Public Use
  Company Number: 2004-DE-04954GD

PATIENT
  Age: 28 Year
  Sex: Male

DRUGS (7)
  1. CLONIDINE [Suspect]
  2. HYDROMORPHONE HCL [Suspect]
     Indication: ANALGESIC EFFECT
     Dosage: 30 MG/H, IV
     Route: 042
  3. MIDAZOLAM HCL [Suspect]
     Indication: SEDATION
     Dosage: 20 MG/H, IV
     Route: 042
  4. DIAZEPAM [Suspect]
     Indication: SEDATION
     Dosage: 900 MG, SEE TEXT
  5. FENTANYL [Suspect]
     Indication: ANALGESIC EFFECT
     Dosage: 700 MCG/H, IV
     Route: 042
  6. PROPOFOL [Suspect]
     Indication: SEDATION
     Dosage: 300 MG/H, IV
     Route: 042
  7. OLANZAPINE [Suspect]

REACTIONS (3)
  - AGITATION [None]
  - DYSPNOEA [None]
  - ILEUS [None]
